FAERS Safety Report 20426825 (Version 1)
Quarter: 2022Q1

REPORT INFORMATION
  Report Type: Report from Study
  Country: IE (occurrence: IE)
  Receive Date: 20220204
  Receipt Date: 20220204
  Transmission Date: 20220423
  Serious: No
  Sender: FDA-Public Use
  Company Number: IE-EXELIXIS-CABO-21045718

PATIENT
  Sex: Male

DRUGS (1)
  1. CABOMETYX [Suspect]
     Active Substance: CABOZANTINIB S-MALATE
     Indication: Renal cell carcinoma
     Dosage: 20 MG
     Dates: start: 2018

REACTIONS (8)
  - Erythema [Not Recovered/Not Resolved]
  - Dry eye [Not Recovered/Not Resolved]
  - Lid sulcus deepened [Unknown]
  - Ketonuria [Unknown]
  - Oedema peripheral [Not Recovered/Not Resolved]
  - Diarrhoea [Not Recovered/Not Resolved]
  - Dehydration [Unknown]
  - Proteinuria [Unknown]
